FAERS Safety Report 17699821 (Version 4)
Quarter: 2020Q3

REPORT INFORMATION
  Report Type: Spontaneous
  Country: US (occurrence: US)
  Receive Date: 20200423
  Receipt Date: 20200719
  Transmission Date: 20201102
  Serious: Yes (Hospitalization, Other)
  Sender: FDA-Public Use
  Company Number: US-LEXICON PHARMACEUTICALS, INC-20-1606-00306

PATIENT
  Age: 69 Year
  Sex: Female

DRUGS (5)
  1. LANREOTIDE [Concomitant]
     Active Substance: LANREOTIDE
     Indication: PRODUCT USED FOR UNKNOWN INDICATION
     Route: 065
  2. OMEPRAZOLE. [Concomitant]
     Active Substance: OMEPRAZOLE
  3. OCTREOTIDE. [Concomitant]
     Active Substance: OCTREOTIDE
     Indication: PRODUCT USED FOR UNKNOWN INDICATION
     Route: 065
  4. XERMELO [Suspect]
     Active Substance: TELOTRISTAT ETHYL
     Indication: CARCINOID SYNDROME
     Dates: start: 20170913
  5. XERMELO [Suspect]
     Active Substance: TELOTRISTAT ETHYL

REACTIONS (8)
  - Flushing [Unknown]
  - Gastrooesophageal reflux disease [Unknown]
  - Decreased appetite [Recovering/Resolving]
  - Hospice care [Unknown]
  - Dehydration [Unknown]
  - Weight decreased [Unknown]
  - Stress [Unknown]
  - Illness [Unknown]
